FAERS Safety Report 7481230-1 (Version None)
Quarter: 2011Q2

REPORT INFORMATION
  Report Type: 
  Country: None (occurrence: None)
  Receive Date: 20110516
  Receipt Date: 20110503
  Transmission Date: 20111010
  Serious: Yes (Hospitalization, Other)
  Sender: FDA-Public Use
  Company Number: PHHY2011US37687

PATIENT
  Sex: Female

DRUGS (12)
  1. CARVEDILOL [Suspect]
     Dosage: 6.5 MG, QID
  2. MYSOLINE [Suspect]
     Indication: DIZZINESS
     Dosage: 0.5 DF, PRN
  3. DIOVAN [Suspect]
     Dosage: 160 MG, QD
  4. ZEMOPRAD [Suspect]
     Indication: DIABETES MELLITUS
  5. TIKOSYN [Suspect]
     Dosage: 250 MG, BID
  6. SCOT-TUSSIN COUGH + COLD MEDICINE [Suspect]
  7. CARVEDILOL [Suspect]
     Dosage: 6.5 MG, BID
  8. ALLEGRA [Suspect]
  9. POTASSIUM [Suspect]
     Dosage: 1 DF, UNK
  10. FUROSEMIDE [Suspect]
     Dosage: 0.5 DF, QD
  11. MAGNESIUM OXIDE [Suspect]
  12. WARFARIN SODIUM [Suspect]

REACTIONS (5)
  - DIZZINESS [None]
  - ARRHYTHMIA [None]
  - DIABETES MELLITUS [None]
  - HYPERTENSION [None]
  - NASOPHARYNGITIS [None]
